FAERS Safety Report 7611473-5 (Version None)
Quarter: 2011Q3

REPORT INFORMATION
  Report Type: 
  Country: None (occurrence: None)
  Receive Date: 20110715
  Receipt Date: 20110701
  Transmission Date: 20111222
  Serious: Yes (Other)
  Sender: FDA-Public Use
  Company Number: US-BAYER-2011-058854

PATIENT
  Age: 62 Year
  Sex: Female
  Weight: 93 kg

DRUGS (4)
  1. TYLENOL (NOT SPECIFIED) [Concomitant]
     Dosage: 3 DF, ONCE
     Route: 048
  2. METOPROLOL TARTRATE [Concomitant]
  3. COUMADIN [Concomitant]
     Route: 048
  4. ALKA-SELTZER ORIGINAL [Suspect]
     Indication: DYSPEPSIA
     Dosage: LOT NUMBER, EXPIRATION DATE AND COUNT SIZE NOT REPORTED
     Route: 048
     Dates: start: 20110601

REACTIONS (1)
  - VAGINAL HAEMORRHAGE [None]
